FAERS Safety Report 5364874-2 (Version None)
Quarter: 2007Q2

REPORT INFORMATION
  Report Type: 
  Country: None (occurrence: None)
  Receive Date: 20070606
  Receipt Date: 20060619
  Transmission Date: 20071010
  Serious: Yes (Other)
  Sender: FDA-Public Use
  Company Number: 2006079500

PATIENT
  Age: 44 Year
  Sex: Female
  Weight: 39.4629 kg

DRUGS (3)
  1. ELLENCE [Suspect]
     Indication: BREAST CANCER
     Dosage: 120 MG (120 MG), INTRAVENOUS
     Route: 042
     Dates: start: 20060607, end: 20060607
  2. FLUOROURACIL [Concomitant]
  3. CYCLOPHOSPHAMIDE [Concomitant]

REACTIONS (4)
  - DRY SKIN [None]
  - ERYTHEMA [None]
  - SKIN EXFOLIATION [None]
  - SWELLING [None]
